FAERS Safety Report 22288701 (Version 1)
Quarter: 2023Q2

REPORT INFORMATION
  Report Type: Spontaneous
  Country: IT (occurrence: IT)
  Receive Date: 20230505
  Receipt Date: 20230505
  Transmission Date: 20230722
  Serious: Yes (Other)
  Sender: FDA-Public Use
  Company Number: IT-AMGEN-ITASP2023075826

PATIENT

DRUGS (9)
  1. FILGRASTIM [Suspect]
     Active Substance: FILGRASTIM
     Indication: Haematopoietic stem cell mobilisation
     Dosage: UNK
     Route: 065
  2. NEULASTA [Suspect]
     Active Substance: PEGFILGRASTIM
     Indication: Autologous haematopoietic stem cell transplant
     Dosage: 6 MILLIGRAM
     Route: 065
  3. NEULASTA [Suspect]
     Active Substance: PEGFILGRASTIM
     Indication: Off label use
  4. BORTEZOMIB [Concomitant]
     Active Substance: BORTEZOMIB
     Indication: Peripheral blood stem cell apheresis
     Route: 065
  5. CYCLOPHOSPHAMIDE [Concomitant]
     Active Substance: CYCLOPHOSPHAMIDE
     Indication: Peripheral blood stem cell apheresis
     Route: 065
  6. LEVOFLOXACIN [Concomitant]
     Active Substance: LEVOFLOXACIN
     Indication: Prophylaxis
     Dosage: 500 MILLIGRAM ( FROM DAY 0 UNTIL EUTROPHIL ENGRAFTMENT)
     Route: 048
  7. ACYCLOVIR [Concomitant]
     Active Substance: ACYCLOVIR
     Indication: Prophylaxis
     Dosage: 800 MILLIGRAM, BID (FROM DAY 3 UNTIL APPROXIMATELY DAY 90 POST-ASCT)
     Route: 065
  8. MELPHALAN [Concomitant]
     Active Substance: MELPHALAN
     Indication: Prophylaxis
     Dosage: UNK
  9. SULFAMETHOXAZOLE\TRIMETHOPRIM [Concomitant]
     Active Substance: SULFAMETHOXAZOLE\TRIMETHOPRIM
     Indication: Prophylaxis
     Dosage: 1 DOSAGE FORM (1 DOUBLE STRENGHT TABLET ; 2-3 TIMES WEEKLY)

REACTIONS (6)
  - Febrile neutropenia [Unknown]
  - Mucosal inflammation [Unknown]
  - Diarrhoea [Unknown]
  - Pyrexia [Unknown]
  - Bone pain [Unknown]
  - Off label use [Unknown]
